FAERS Safety Report 5684827-4 (Version None)
Quarter: 2008Q1

REPORT INFORMATION
  Report Type: 
  Country: None (occurrence: None)
  Receive Date: 20080328
  Receipt Date: 20080110
  Transmission Date: 20080703
  Serious: Yes (Hospitalization)
  Sender: FDA-Public Use
  Company Number: US-BRISTOL-MYERS SQUIBB COMPANY-13947262

PATIENT
  Sex: Male

DRUGS (3)
  1. ERBITUX [Suspect]
     Indication: PANCREATIC CARCINOMA
     Dosage: 400 MG IV (LOADING DOSE),2 WKS LATER RECHALLENGED WITH 250MG
     Route: 042
  2. XELODA [Concomitant]
  3. GEMZAR [Concomitant]

REACTIONS (1)
  - CHEST PAIN [None]
